FAERS Safety Report 12172103 (Version 1)
Quarter: 2016Q1

REPORT INFORMATION
  Report Type: Spontaneous
  Country: CN (occurrence: CN)
  Receive Date: 20160311
  Receipt Date: 20160311
  Transmission Date: 20160526
  Serious: Yes (Hospitalization)
  Sender: FDA-Public Use
  Company Number: CN-BAYER-2016-044783

PATIENT
  Age: 60 Year
  Sex: Female

DRUGS (1)
  1. GADOVIST [Suspect]
     Active Substance: GADOBUTROL
     Indication: NUCLEAR MAGNETIC RESONANCE IMAGING BRAIN
     Dosage: 6 ML, ONCE
     Route: 042
     Dates: start: 20160120, end: 20160120

REACTIONS (6)
  - Headache [None]
  - Hypotension [None]
  - Dizziness [None]
  - Discomfort [None]
  - Pain [None]
  - Nausea [None]

NARRATIVE: CASE EVENT DATE: 20160120
